FAERS Safety Report 7288238-X (Version None)
Quarter: 2011Q1

REPORT INFORMATION
  Report Type: 
  Country: None (occurrence: None)
  Receive Date: 20110207
  Receipt Date: 20110207
  Transmission Date: 20110831
  Serious: Yes (Hospitalization, Other)
  Sender: FDA-Public Use
  Company Number: None

PATIENT
  Age: 53 Year
  Sex: Female
  Weight: 114 kg

DRUGS (2)
  1. LOVENOX [Suspect]
     Indication: TREATMENT FAILURE
     Dosage: 120 MG EVERY 12 HOURS SQ  LIFETIME USE BEGAN 2008
     Route: 058
     Dates: start: 20080101
  2. LOVENOX [Suspect]
     Indication: PULMONARY EMBOLISM
     Dosage: 120 MG EVERY 12 HOURS SQ  LIFETIME USE BEGAN 2008
     Route: 058
     Dates: start: 20080101

REACTIONS (10)
  - NEEDLE ISSUE [None]
  - INJURY ASSOCIATED WITH DEVICE [None]
  - PAIN IN EXTREMITY [None]
  - ERYTHEMA [None]
  - SYRINGE ISSUE [None]
  - LIGAMENT RUPTURE [None]
  - OEDEMA PERIPHERAL [None]
  - ACTIVITIES OF DAILY LIVING IMPAIRED [None]
  - HAEMATOMA [None]
  - LOCALISED INFECTION [None]
